FAERS Safety Report 13230560 (Version 3)
Quarter: 2017Q2

REPORT INFORMATION
  Report Type: Spontaneous
  Country: DK (occurrence: DK)
  Receive Date: 20170214
  Receipt Date: 20170425
  Transmission Date: 20170830
  Serious: Yes (Hospitalization, Other)
  Sender: FDA-Public Use
  Company Number: DK-GLAXOSMITHKLINE-DK2017GSK018516

PATIENT
  Age: 77 Year
  Sex: Female

DRUGS (1)
  1. NICOTINELL [Suspect]
     Active Substance: NICOTINE
     Indication: EX-TOBACCO USER

REACTIONS (8)
  - Anaphylactic reaction [Recovered/Resolved]
  - Ill-defined disorder [Unknown]
  - Lip swelling [Unknown]
  - Product quality issue [Unknown]
  - Swollen tongue [Unknown]
  - Product use issue [Unknown]
  - Swelling face [Unknown]
  - Hypersensitivity [Recovered/Resolved]
